FAERS Safety Report 22890523 (Version 8)
Quarter: 2024Q2

REPORT INFORMATION
  Report Type: Report from Study
  Country: US (occurrence: US)
  Receive Date: 20230831
  Receipt Date: 20240412
  Transmission Date: 20240716
  Serious: Yes (Hospitalization, Other)
  Sender: FDA-Public Use
  Company Number: US-ACADIA PHARMACEUTICALS INC.-ACA-2023-TRF-003388

PATIENT
  Sex: Female

DRUGS (12)
  1. DAYBUE [Suspect]
     Active Substance: TROFINETIDE
     Indication: Rett syndrome
     Dosage: 35 MILLILITER, BID
     Route: 048
     Dates: start: 20230701, end: 20230804
  2. DAYBUE [Suspect]
     Active Substance: TROFINETIDE
     Dosage: 60 MILLILITER, BID
     Route: 048
     Dates: start: 20230820
  3. DAYBUE [Suspect]
     Active Substance: TROFINETIDE
     Dosage: 5 MILLILITER, QD
     Route: 048
     Dates: start: 20230904, end: 20230906
  4. DAYBUE [Suspect]
     Active Substance: TROFINETIDE
     Dosage: 5 MILLILITER, BID
     Route: 048
     Dates: start: 202309, end: 202309
  5. DAYBUE [Suspect]
     Active Substance: TROFINETIDE
     Dosage: 10 MILLILITER, BID
     Route: 048
     Dates: start: 202309
  6. DAYBUE [Suspect]
     Active Substance: TROFINETIDE
     Dosage: 15 MILLILITER, BID, VIA G TUBE
  7. DAYBUE [Suspect]
     Active Substance: TROFINETIDE
     Dosage: UNK
     Route: 065
     Dates: start: 20231001, end: 202310
  8. DAYBUE [Suspect]
     Active Substance: TROFINETIDE
     Dosage: 20 MILLILITER, BID, VIA G TUBE
     Dates: end: 20231130
  9. DAYBUE [Suspect]
     Active Substance: TROFINETIDE
     Dosage: 10 MILLILITRE, BID VIA G TUBE
  10. DAYBUE [Suspect]
     Active Substance: TROFINETIDE
     Dosage: UNKNOWN
     Route: 065
     Dates: start: 20240101
  11. BENADRYL [Concomitant]
     Active Substance: DIPHENHYDRAMINE HYDROCHLORIDE
  12. IMODIUM [Concomitant]
     Active Substance: LOPERAMIDE HYDROCHLORIDE

REACTIONS (16)
  - Pneumonia [Not Recovered/Not Resolved]
  - Treatment noncompliance [Recovered/Resolved]
  - Upper respiratory tract infection [Unknown]
  - Viral infection [Unknown]
  - Product dose omission issue [Unknown]
  - Frequent bowel movements [Not Recovered/Not Resolved]
  - Weight decreased [Not Recovered/Not Resolved]
  - Illness [Unknown]
  - Hypophagia [Unknown]
  - Inappropriate schedule of product administration [Not Recovered/Not Resolved]
  - Underdose [Not Recovered/Not Resolved]
  - Product dose omission issue [Recovered/Resolved]
  - Diarrhoea [Recovering/Resolving]
  - Diarrhoea [Recovered/Resolved]
  - Vomiting [Unknown]
  - Diarrhoea [Recovered/Resolved]

NARRATIVE: CASE EVENT DATE: 20230101
